FAERS Safety Report 10747326 (Version 3)
Quarter: 2015Q2

REPORT INFORMATION
  Report Type: Spontaneous
  Country: US (occurrence: None)
  Receive Date: 20150127
  Receipt Date: 20150522
  Transmission Date: 20150821
  Serious: Yes (Other)
  Sender: FDA-Public Use
  Company Number: US2015003700

PATIENT
  Age: 50 Year
  Sex: Male

DRUGS (2)
  1. TIVICAY [Suspect]
     Active Substance: DOLUTEGRAVIR SODIUM
     Indication: HIV INFECTION
     Dosage: 50 MG, QD, ORAL
     Route: 048
     Dates: start: 20140915
  2. EPZICOM [Suspect]
     Active Substance: ABACAVIR SULFATE\LAMIVUDINE
     Indication: HIV INFECTION
     Dosage: 1 DF, QD, ORAL
     Route: 048
     Dates: start: 20140915

REACTIONS (42)
  - Arthralgia [None]
  - Ocular icterus [None]
  - Visual acuity reduced [None]
  - Quality of life decreased [None]
  - Abdominal pain [None]
  - Weight decreased [None]
  - Blood glucose decreased [None]
  - Constipation [None]
  - Ill-defined disorder [None]
  - Diabetic coma [None]
  - Rhinorrhoea [None]
  - Sneezing [None]
  - Cough [None]
  - Asthenia [None]
  - Hepatic pain [None]
  - Renal pain [None]
  - Dizziness [None]
  - Pain [None]
  - Insomnia [None]
  - Emotional distress [None]
  - Abdominal pain upper [None]
  - Enzyme inhibition [None]
  - Cachexia [None]
  - Chills [None]
  - Feeling cold [None]
  - Angina pectoris [None]
  - Jaundice [None]
  - Arthropathy [None]
  - Anxiety [None]
  - Hyperglycaemia [None]
  - Skin necrosis [None]
  - Infrequent bowel movements [None]
  - Fatigue [None]
  - Restlessness [None]
  - Nervousness [None]
  - Dyspnoea [None]
  - Muscle atrophy [None]
  - Blood glucose increased [None]
  - Vision blurred [None]
  - Nasopharyngitis [None]
  - Hepatitis [None]
  - Type 2 diabetes mellitus [None]

NARRATIVE: CASE EVENT DATE: 201409
